FAERS Safety Report 18265001 (Version 3)
Quarter: 2020Q4

REPORT INFORMATION
  Report Type: Report from Study
  Country: US (occurrence: US)
  Receive Date: 20200914
  Receipt Date: 20201202
  Transmission Date: 20210113
  Serious: Yes (Hospitalization)
  Sender: FDA-Public Use
  Company Number: US-JNJFOC-A-US2020-204044

PATIENT
  Age: 64 Year
  Sex: Female

DRUGS (14)
  1. SILDENAFIL. [Concomitant]
     Active Substance: SILDENAFIL
  2. ASPIRIN. [Concomitant]
     Active Substance: ASPIRIN
  3. LINZESS [Concomitant]
     Active Substance: LINACLOTIDE
  4. POTASSIUM [Concomitant]
     Active Substance: POTASSIUM
  5. VITAMIN B12 [Concomitant]
     Active Substance: CYANOCOBALAMIN
     Dosage: INJECTION
  6. ESOMEPRAZOLE. [Concomitant]
     Active Substance: ESOMEPRAZOLE MAGNESIUM
  7. OPSUMIT [Suspect]
     Active Substance: MACITENTAN
     Indication: PULMONARY ARTERIAL HYPERTENSION
     Dosage: 10 MG, QD
     Route: 048
     Dates: start: 20200319, end: 202010
  8. SPIRONOLACTONE. [Concomitant]
     Active Substance: SPIRONOLACTONE
  9. BUMEX [Concomitant]
     Active Substance: BUMETANIDE
  10. METOPROLOL. [Concomitant]
     Active Substance: METOPROLOL
  11. POTASSIUM CHLORIDE. [Concomitant]
     Active Substance: POTASSIUM CHLORIDE
  12. LISINOPRIL. [Concomitant]
     Active Substance: LISINOPRIL
  13. ELIQUIS [Concomitant]
     Active Substance: APIXABAN
  14. HYDROCODONE [Concomitant]
     Active Substance: HYDROCODONE

REACTIONS (25)
  - Abdominal pain [Unknown]
  - Gastrooesophageal reflux disease [Not Recovered/Not Resolved]
  - Pain in extremity [Unknown]
  - Gallbladder rupture [Unknown]
  - Insomnia [Unknown]
  - Heart rate decreased [Not Recovered/Not Resolved]
  - Sepsis [Unknown]
  - Decreased appetite [Unknown]
  - Hypersensitivity [Not Recovered/Not Resolved]
  - Dyspepsia [Unknown]
  - Dehydration [Unknown]
  - Product dose omission issue [Unknown]
  - Paranasal sinus hypersecretion [Not Recovered/Not Resolved]
  - Sinus disorder [Not Recovered/Not Resolved]
  - Cholelithiasis [Unknown]
  - Nasal congestion [Not Recovered/Not Resolved]
  - Dyspnoea [Unknown]
  - Gallbladder operation [Unknown]
  - Headache [Unknown]
  - Sinus congestion [Unknown]
  - Nausea [Not Recovered/Not Resolved]
  - Dizziness [Not Recovered/Not Resolved]
  - Heart rate abnormal [Not Recovered/Not Resolved]
  - Weight increased [Unknown]
  - Gait inability [Unknown]

NARRATIVE: CASE EVENT DATE: 20200327
